FAERS Safety Report 21349265 (Version 1)
Quarter: 2022Q3

REPORT INFORMATION
  Report Type: Spontaneous
  Country: IT (occurrence: IT)
  Receive Date: 20220919
  Receipt Date: 20220919
  Transmission Date: 20221026
  Serious: No
  Sender: FDA-Public Use
  Company Number: None

PATIENT
  Age: 50 Year
  Sex: Male
  Weight: 60 kg

DRUGS (1)
  1. PAXLOVID [Suspect]
     Active Substance: NIRMATRELVIR\RITONAVIR
     Indication: COVID-19 treatment
     Dosage: 150 MG EVERY 12 HOURS (1 COMPRESSA PER TIPO 2 VOLTE AL GIORNO PER 5 GG)
     Route: 048
     Dates: start: 20220830, end: 20220830

REACTIONS (3)
  - Paraesthesia oral [Recovered/Resolved]
  - Tongue discolouration [Recovered/Resolved]
  - Incorrect dose administered [Unknown]

NARRATIVE: CASE EVENT DATE: 20220830
